FAERS Safety Report 5756294-3 (Version None)
Quarter: 2008Q2

REPORT INFORMATION
  Report Type: 
  Country: None (occurrence: None)
  Receive Date: 20080528
  Receipt Date: 20080528
  Transmission Date: 20081010
  Serious: Yes (Disabling)
  Sender: FDA-Public Use
  Company Number: None

PATIENT
  Age: 56 Year
  Sex: Male
  Weight: 59 kg

DRUGS (12)
  1. CLOZARIL [Suspect]
     Indication: SCHIZOPHRENIA
     Dosage: 25MG THREE TIMES DAILY PO
     Route: 048
  2. PHENYTOIN [Concomitant]
  3. PROTONIX [Concomitant]
  4. HEPARIN [Concomitant]
  5. ATIVAN [Concomitant]
  6. ASPIRIN [Concomitant]
  7. FOLIC ACID [Concomitant]
  8. CALCIUM+D [Concomitant]
  9. MORPHINE [Concomitant]
  10. ZOCOR [Concomitant]
  11. LACTULOSE [Concomitant]
  12. TOPAMAX [Concomitant]

REACTIONS (1)
  - NEUTROPENIA [None]
